FAERS Safety Report 7487124-X (Version None)
Quarter: 2011Q2

REPORT INFORMATION
  Report Type: 
  Country: None (occurrence: None)
  Receive Date: 20110510
  Receipt Date: 20110427
  Transmission Date: 20111010
  Serious: Yes (Hospitalization)
  Sender: FDA-Public Use
  Company Number: TRP_07703_2011

PATIENT
  Age: 30 Year
  Sex: Female

DRUGS (2)
  1. FLUCONAZOLE [Suspect]
     Indication: MENINGITIS COCCIDIOIDES
     Dosage: (800 MG QD ORAL)
     Route: 048
     Dates: start: 20040401, end: 20040401
  2. AMPHOTERICIN B [Suspect]
     Indication: MENINGITIS COCCIDIOIDES
     Dosage: (DF INTRAVENOUS (NOT OTHERWISE SPECIFIED))
     Route: 042
     Dates: start: 20040401, end: 20040401

REACTIONS (7)
  - MENINGITIS COCCIDIOIDES [None]
  - DRUG EXPOSURE DURING PREGNANCY [None]
  - MULTI-ORGAN FAILURE [None]
  - TREATMENT NONCOMPLIANCE [None]
  - ARACHNOIDITIS [None]
  - INTRA-UTERINE DEATH [None]
  - RENAL FAILURE [None]
